FAERS Safety Report 15667317 (Version 1)
Quarter: 2018Q4

REPORT INFORMATION
  Report Type: Spontaneous
  Country: US (occurrence: US)
  Receive Date: 20181128
  Receipt Date: 20181128
  Transmission Date: 20190205
  Serious: No
  Sender: FDA-Public Use
  Company Number: US-ROCHE-2132539

PATIENT
  Age: 54 Year
  Sex: Female
  Weight: 98.97 kg

DRUGS (1)
  1. OCREVUS [Suspect]
     Active Substance: OCRELIZUMAB
     Indication: MULTIPLE SCLEROSIS
     Dosage: 1ST HALF DOSE ;ONGOING: YES
     Route: 065
     Dates: start: 20180516

REACTIONS (3)
  - Dyspnoea [Unknown]
  - Band sensation [Unknown]
  - Body height decreased [Unknown]

NARRATIVE: CASE EVENT DATE: 20180521
